FAERS Safety Report 12140186 (Version 2)
Quarter: 2016Q1

REPORT INFORMATION
  Report Type: Spontaneous
  Country: ES (occurrence: ES)
  Receive Date: 20160303
  Receipt Date: 20160309
  Transmission Date: 20160526
  Serious: Yes (Other)
  Sender: FDA-Public Use
  Company Number: ALCN2016ES001613

PATIENT
  Age: 52 Year
  Sex: Male

DRUGS (2)
  1. BSS [Suspect]
     Active Substance: CALCIUM CHLORIDE\MAGNESIUM CHLORIDE\POTASSIUM CHLORIDE\SODIUM ACETATE\SODIUM CHLORIDE\SODIUM CITRATE
     Indication: INTRAOPERATIVE CARE
     Dosage: UNK
     Route: 031
  2. ADRENALINE [Concomitant]
     Active Substance: EPINEPHRINE
     Indication: INTRAOPERATIVE CARE
     Dosage: UNK
     Route: 065

REACTIONS (3)
  - Optic nerve injury [Not Recovered/Not Resolved]
  - Macular fibrosis [Not Recovered/Not Resolved]
  - Visual acuity reduced [Not Recovered/Not Resolved]

NARRATIVE: CASE EVENT DATE: 20150908
